FAERS Safety Report 23580209 (Version 1)
Quarter: 2024Q1

REPORT INFORMATION
  Report Type: Spontaneous
  Country: CN (occurrence: CN)
  Receive Date: 20240229
  Receipt Date: 20240229
  Transmission Date: 20240409
  Serious: Yes (Hospitalization)
  Sender: FDA-Public Use
  Company Number: CN-NOVITIUMPHARMA-2024CNNVP00192

PATIENT
  Age: 44 Year
  Sex: Male

DRUGS (4)
  1. PREDNISONE [Suspect]
     Active Substance: PREDNISONE
     Indication: Pyoderma gangrenosum
  2. PREDNISONE [Suspect]
     Active Substance: PREDNISONE
  3. TOFACITINIB [Concomitant]
     Active Substance: TOFACITINIB
     Indication: Pyoderma gangrenosum
  4. ADALIMUMAB [Concomitant]
     Active Substance: ADALIMUMAB\ISOPROPYL ALCOHOL
     Indication: Pyoderma gangrenosum

REACTIONS (1)
  - Treatment failure [Unknown]
